FAERS Safety Report 8798859 (Version 1)
Quarter: 2012Q4

REPORT INFORMATION
  Report Type: Spontaneous
  Country: US (occurrence: None)
  Receive Date: 20120918
  Receipt Date: 20120918
  Transmission Date: 20130627
  Serious: Yes (Other)
  Sender: FDA-Public Use
  Company Number: None

PATIENT
  Age: 22 Year
  Sex: Female

DRUGS (3)
  1. PROZAC [Suspect]
     Indication: AUTISM
  2. PROZAC [Suspect]
     Indication: MENTAL RETARDATION
  3. PROZAC [Suspect]
     Indication: DEPRESSION

REACTIONS (3)
  - Depression [None]
  - Aggression [None]
  - Anger [None]
